FAERS Safety Report 13129719 (Version 1)
Quarter: 2017Q1

REPORT INFORMATION
  Report Type: Spontaneous
  Country: US (occurrence: US)
  Receive Date: 20170118
  Receipt Date: 20170118
  Transmission Date: 20170428
  Serious: Yes (Other)
  Sender: FDA-Public Use
  Company Number: None

PATIENT
  Age: 47 Year
  Sex: Female
  Weight: 58.95 kg

DRUGS (2)
  1. PICATO [Suspect]
     Active Substance: INGENOL MEBUTATE
     Indication: SKIN CANCER
     Dosage: ?          QUANTITY:3 SMALL TUBE;?
     Route: 061
  2. TRI-FEGELEST (BIRTH CONTROL) [Concomitant]

REACTIONS (1)
  - Eye swelling [None]

NARRATIVE: CASE EVENT DATE: 20170115
